FAERS Safety Report 9737854 (Version 1)
Quarter: 2013Q4

REPORT INFORMATION
  Report Type: Spontaneous
  Country: US (occurrence: US)
  Receive Date: 20131208
  Receipt Date: 20131208
  Transmission Date: 20140711
  Serious: No
  Sender: FDA-Public Use
  Company Number: US-SA-RENA-1001912

PATIENT
  Sex: 0

DRUGS (2)
  1. SEVELAMER CARBONATE [Suspect]
     Indication: PRODUCT USED FOR UNKNOWN INDICATION
     Dosage: 0.8 G, UNK; 4 TABS WITH MEALS AND 3 WITH SNACKS
     Route: 065
  2. SEVELAMER CARBONATE [Suspect]
     Indication: PRODUCT USED FOR UNKNOWN INDICATION

REACTIONS (1)
  - Pruritus [Not Recovered/Not Resolved]
